FAERS Safety Report 9457638 (Version 1)
Quarter: 2013Q3

REPORT INFORMATION
  Report Type: Spontaneous
  Country: US (occurrence: None)
  Receive Date: 20130812
  Receipt Date: 20130812
  Transmission Date: 20140515
  Serious: Yes (Other)
  Sender: FDA-Public Use
  Company Number: None

PATIENT
  Sex: 0

DRUGS (1)
  1. ZZZQUILL [Suspect]
     Dates: start: 20121030, end: 20130401

REACTIONS (1)
  - Disturbance in attention [None]
